FAERS Safety Report 9815613 (Version 2)
Quarter: 2014Q1

REPORT INFORMATION
  Report Type: Report from Study
  Country: US (occurrence: US)
  Receive Date: 20140114
  Receipt Date: 20140114
  Transmission Date: 20141002
  Serious: Yes (Other)
  Sender: FDA-Public Use
  Company Number: US-ABBVIE-11P-163-0716131-00

PATIENT
  Age: 55 Year
  Sex: Female
  Weight: 67.65 kg

DRUGS (20)
  1. HUMIRA 40 MG/0.8 ML PEN [Suspect]
     Indication: RHEUMATOID ARTHRITIS
     Dates: start: 201009, end: 2011
  2. HYZAAR [Concomitant]
     Indication: HYPERTENSION
     Dosage: 100/25
  3. NASONEX [Concomitant]
     Indication: PRODUCT USED FOR UNKNOWN INDICATION
     Dosage: 2 SPRAYS EACH NARES 1-2 DAILY
  4. ADVAIR [Concomitant]
     Indication: PRODUCT USED FOR UNKNOWN INDICATION
     Dosage: 100/50 MG; AS NEEDED
  5. METHOTREXATE [Concomitant]
     Indication: RHEUMATOID ARTHRITIS
  6. PRILOSEC [Concomitant]
     Indication: PRODUCT USED FOR UNKNOWN INDICATION
  7. IMODIUM [Concomitant]
     Indication: PRODUCT USED FOR UNKNOWN INDICATION
     Dosage: 1-4 PRN
  8. FOLIC ACID [Concomitant]
     Indication: PRODUCT USED FOR UNKNOWN INDICATION
  9. FISH OIL [Concomitant]
     Indication: PRODUCT USED FOR UNKNOWN INDICATION
  10. ZINC [Concomitant]
     Indication: PRODUCT USED FOR UNKNOWN INDICATION
  11. CITRACAL [Concomitant]
     Indication: PRODUCT USED FOR UNKNOWN INDICATION
  12. VIT D3 [Concomitant]
     Indication: PRODUCT USED FOR UNKNOWN INDICATION
  13. MVI [Concomitant]
     Indication: VITAMIN SUPPLEMENTATION
  14. NAPROSYN [Concomitant]
     Indication: RHEUMATOID ARTHRITIS
  15. ALBUTEROL HFA [Concomitant]
     Indication: ASTHMA
  16. OMEPRAZOLE [Concomitant]
     Indication: GASTROOESOPHAGEAL REFLUX DISEASE
  17. CLARITIN [Concomitant]
     Indication: HYPERSENSITIVITY
  18. DICLOF/BACL/CYCLOB/GABAP/BUPIV [Concomitant]
     Indication: PAIN IN EXTREMITY
     Route: 061
  19. DICLOF/BACL/CYCLOB/GABAP/BUPIV [Concomitant]
     Indication: LOCAL SWELLING
  20. DICLOF/BACL/CYCLOB/GABAP/BUPIV [Concomitant]
     Indication: RHEUMATOID ARTHRITIS

REACTIONS (16)
  - Sinus congestion [Recovered/Resolved]
  - Diverticulitis [Recovered/Resolved]
  - Bronchitis [Recovered/Resolved]
  - Cataract [Recovered/Resolved]
  - Sepsis [Recovered/Resolved]
  - Arthropod bite [Recovered/Resolved]
  - Erythema [Recovered/Resolved]
  - Sinusitis [Not Recovered/Not Resolved]
  - Sinus headache [Not Recovered/Not Resolved]
  - Epistaxis [Recovered/Resolved]
  - Pneumonia [Recovered/Resolved]
  - Sinusitis aspergillus [Recovered/Resolved]
  - Sinus congestion [Recovered/Resolved]
  - Sinus polyp [Recovered/Resolved]
  - Sinusitis aspergillus [Not Recovered/Not Resolved]
  - Sinus headache [Not Recovered/Not Resolved]
